FAERS Safety Report 5700321-6 (Version None)
Quarter: 2008Q2

REPORT INFORMATION
  Report Type: 
  Country: None (occurrence: None)
  Receive Date: 20080410
  Receipt Date: 20080404
  Transmission Date: 20081010
  Serious: Yes (Hospitalization)
  Sender: FDA-Public Use
  Company Number: B0515387A

PATIENT
  Age: 75 Year
  Sex: Male

DRUGS (1)
  1. CLAMOXYL [Suspect]
     Indication: BRONCHITIS
     Route: 065
     Dates: start: 20080219, end: 20080219

REACTIONS (2)
  - DYSPNOEA [None]
  - ERYTHEMA [None]
